FAERS Safety Report 17395203 (Version 1)
Quarter: 2020Q1

REPORT INFORMATION
  Report Type: Spontaneous
  Country: US (occurrence: US)
  Receive Date: 20200207
  Receipt Date: 20200207
  Transmission Date: 20200409
  Serious: No
  Sender: FDA-Public Use
  Company Number: None

PATIENT

DRUGS (1)
  1. HEPARIN SODIUM 10 ML VIAL [Suspect]
     Active Substance: HEPARIN SODIUM

REACTIONS (4)
  - Drug ineffective [None]
  - Coagulation time shortened [None]
  - Product complaint [None]
  - Product quality issue [None]

NARRATIVE: CASE EVENT DATE: 20200204
